FAERS Safety Report 25303905 (Version 1)
Quarter: 2025Q2

REPORT INFORMATION
  Report Type: Spontaneous
  Country: GB (occurrence: GB)
  Receive Date: 20250513
  Receipt Date: 20250513
  Transmission Date: 20250717
  Serious: Yes (Other)
  Sender: ACCORD
  Company Number: None

PATIENT
  Age: 63 Year
  Sex: Female
  Weight: 94 kg

DRUGS (13)
  1. SERTRALINE [Suspect]
     Active Substance: SERTRALINE HYDROCHLORIDE
     Indication: Ill-defined disorder
     Dates: start: 20250429
  2. AMITRIPTYLINE HYDROCHLORIDE [Concomitant]
     Active Substance: AMITRIPTYLINE HYDROCHLORIDE
     Indication: Ill-defined disorder
     Dates: start: 20240507
  3. AMLODIPINE [Concomitant]
     Active Substance: AMLODIPINE BESYLATE
     Indication: Ill-defined disorder
     Dates: start: 20240507
  4. CELECOXIB [Concomitant]
     Active Substance: CELECOXIB
     Indication: Ill-defined disorder
     Dates: start: 20240507, end: 20250429
  5. CLOPIDOGREL [Concomitant]
     Active Substance: CLOPIDOGREL BISULFATE
     Indication: Ill-defined disorder
     Dates: start: 20240507
  6. DIAZEPAM [Concomitant]
     Active Substance: DIAZEPAM
     Indication: Ill-defined disorder
     Dates: start: 20240507, end: 20250429
  7. LANSOPRAZOLE [Concomitant]
     Active Substance: LANSOPRAZOLE
     Indication: Ill-defined disorder
     Dates: start: 20240507
  8. OXYCODONE HYDROCHLORIDE [Concomitant]
     Active Substance: OXYCODONE HYDROCHLORIDE
     Indication: Ill-defined disorder
     Dates: start: 20240507
  9. PROPRANOLOL [Concomitant]
     Active Substance: PROPRANOLOL HYDROCHLORIDE
     Indication: Ill-defined disorder
     Dates: start: 20240507
  10. OXYCODONE HYDROCHLORIDE [Concomitant]
     Active Substance: OXYCODONE HYDROCHLORIDE
     Indication: Ill-defined disorder
     Dates: start: 20240507
  11. ZOPICLONE [Concomitant]
     Active Substance: ZOPICLONE
     Indication: Ill-defined disorder
     Dates: start: 20240507
  12. VENLAFAXINE [Concomitant]
     Active Substance: VENLAFAXINE HYDROCHLORIDE
     Indication: Ill-defined disorder
     Dates: start: 20240829
  13. LOPERAMIDE [Concomitant]
     Active Substance: LOPERAMIDE
     Indication: Ill-defined disorder
     Dates: start: 20250429

REACTIONS (2)
  - Dry mouth [Unknown]
  - Urinary retention [Unknown]
